FAERS Safety Report 20051273 (Version 1)
Quarter: 2021Q4

REPORT INFORMATION
  Report Type: Other
  Country: IT (occurrence: IT)
  Receive Date: 20211110
  Receipt Date: 20211110
  Transmission Date: 20220303
  Serious: Yes (Life-Threatening, Hospitalization)
  Sender: FDA-Public Use
  Company Number: IT-CELLTRION HEALTHCARE HUNGARY KFT-2021IT012534

PATIENT

DRUGS (19)
  1. RITUXIMAB [Suspect]
     Active Substance: RITUXIMAB
     Indication: Acute lymphocytic leukaemia
     Dosage: SIX CYCLES AT 375 MG/M2
     Route: 041
  2. RITUXIMAB [Suspect]
     Active Substance: RITUXIMAB
     Indication: Double hit lymphoma
     Dosage: 375 MG/M2
     Route: 041
     Dates: start: 201904
  3. RITUXIMAB [Suspect]
     Active Substance: RITUXIMAB
     Indication: Diffuse large B-cell lymphoma
     Dosage: 375 MG/M2 EVERY 21 WEEKS (ADDITIONAL TWO DOSES AFTER COMPLETION OF THE LAST CYCLE)
     Route: 041
     Dates: end: 201912
  4. RITUXIMAB [Suspect]
     Active Substance: RITUXIMAB
     Dosage: 375 MG/M2 EVERY 21 DAYS
     Route: 041
     Dates: start: 201904, end: 201912
  5. ETOPOSIDE [Suspect]
     Active Substance: ETOPOSIDE
     Indication: Acute lymphocytic leukaemia
     Dosage: SIX CYCLES
     Route: 065
     Dates: start: 201904, end: 201912
  6. ETOPOSIDE [Suspect]
     Active Substance: ETOPOSIDE
     Indication: Diffuse large B-cell lymphoma
  7. ETOPOSIDE [Suspect]
     Active Substance: ETOPOSIDE
     Indication: Double hit lymphoma
  8. VINCRISTINE [Suspect]
     Active Substance: VINCRISTINE
     Indication: Double hit lymphoma
     Dosage: SIX CYCLES
     Route: 065
     Dates: start: 201904, end: 201912
  9. VINCRISTINE [Suspect]
     Active Substance: VINCRISTINE
     Indication: Acute lymphocytic leukaemia
  10. VINCRISTINE [Suspect]
     Active Substance: VINCRISTINE
     Indication: Diffuse large B-cell lymphoma
  11. DEXAMETHASONE [Suspect]
     Active Substance: DEXAMETHASONE
     Indication: Double hit lymphoma
     Dosage: SIX CYCLES
     Route: 065
     Dates: start: 201904, end: 201912
  12. DEXAMETHASONE [Suspect]
     Active Substance: DEXAMETHASONE
     Indication: Acute lymphocytic leukaemia
  13. DEXAMETHASONE [Suspect]
     Active Substance: DEXAMETHASONE
     Indication: Diffuse large B-cell lymphoma
  14. METHOTREXATE [Suspect]
     Active Substance: METHOTREXATE
     Indication: Diffuse large B-cell lymphoma
     Dosage: SIX CYCLES
     Route: 065
     Dates: start: 201904, end: 201912
  15. METHOTREXATE [Suspect]
     Active Substance: METHOTREXATE
     Indication: Double hit lymphoma
  16. METHOTREXATE [Suspect]
     Active Substance: METHOTREXATE
     Indication: Acute lymphocytic leukaemia
  17. CYTARABINE [Suspect]
     Active Substance: CYTARABINE
     Indication: Diffuse large B-cell lymphoma
     Dosage: SIX CYCLES
     Route: 065
     Dates: start: 201904, end: 201912
  18. CYTARABINE [Suspect]
     Active Substance: CYTARABINE
     Indication: Double hit lymphoma
  19. CYTARABINE [Suspect]
     Active Substance: CYTARABINE
     Indication: Acute lymphocytic leukaemia

REACTIONS (5)
  - Respiratory distress [Recovered/Resolved]
  - Urinary tract infection [Recovered/Resolved]
  - COVID-19 [Recovered/Resolved]
  - Aspergillus infection [Recovered/Resolved]
  - Off label use [Unknown]

NARRATIVE: CASE EVENT DATE: 20200101
